FAERS Safety Report 12464536 (Version 1)
Quarter: 2016Q2

REPORT INFORMATION
  Report Type: Spontaneous
  Country: US (occurrence: None)
  Receive Date: 20160613
  Receipt Date: 20160613
  Transmission Date: 20160815
  Serious: Yes (Hospitalization, Other)
  Sender: FDA-Public Use
  Company Number: None

PATIENT
  Age: 23 Year
  Sex: Male
  Weight: 84.82 kg

DRUGS (4)
  1. PHENPENTERMINE 82 NG/G [Suspect]
     Active Substance: PENTOREX
  2. AMPHETAMINE 740 NG/G [Suspect]
     Active Substance: AMPHETAMINE
  3. BLACK MAMBA HYPERRUSH [Suspect]
     Active Substance: DIETARY SUPPLEMENT
     Indication: NUTRITIONAL SUPPLEMENTATION
     Route: 048
  4. SYNEPHRINE 16000000 [Suspect]
     Active Substance: OXEDRINE

REACTIONS (5)
  - Rhabdomyolysis [None]
  - Dizziness [None]
  - Vertigo [None]
  - Hypoglycaemia [None]
  - Electrocardiogram T wave inversion [None]

NARRATIVE: CASE EVENT DATE: 20160425
